FAERS Safety Report 10667711 (Version 7)
Quarter: 2017Q2

REPORT INFORMATION
  Report Type: Spontaneous
  Country: US (occurrence: US)
  Receive Date: 20141222
  Receipt Date: 20170407
  Transmission Date: 20170829
  Serious: Yes (Disabling, Other)
  Sender: FDA-Public Use
  Company Number: US-009507513-1110USA03484

PATIENT
  Sex: Male
  Weight: 78.46 kg

DRUGS (2)
  1. FINASTERIDE. [Suspect]
     Active Substance: FINASTERIDE
     Indication: ANDROGENETIC ALOPECIA
     Dosage: 1 MG, UNK
     Route: 048
     Dates: start: 2008, end: 2010
  2. PROPECIA [Suspect]
     Active Substance: FINASTERIDE
     Indication: ANDROGENETIC ALOPECIA
     Dosage: 1 MG, QD
     Route: 048
     Dates: start: 200005, end: 201102

REACTIONS (19)
  - Panic disorder [Unknown]
  - Gynaecomastia [Unknown]
  - Alopecia [Recovering/Resolving]
  - Erectile dysfunction [Not Recovered/Not Resolved]
  - Anxiety [Unknown]
  - Hypertension [Unknown]
  - Ulcer [Unknown]
  - Sexual dysfunction [Unknown]
  - Hypogonadism [Unknown]
  - Blood testosterone decreased [Unknown]
  - Cognitive disorder [Unknown]
  - Depression [Unknown]
  - Suicidal ideation [Unknown]
  - Ejaculation disorder [Unknown]
  - Gastrooesophageal reflux disease [Unknown]
  - Alcohol abuse [Unknown]
  - Libido decreased [Recovering/Resolving]
  - Ejaculation failure [Unknown]
  - Blood testosterone decreased [Recovering/Resolving]

NARRATIVE: CASE EVENT DATE: 2000
